FAERS Safety Report 20607565 (Version 1)
Quarter: 2022Q1

REPORT INFORMATION
  Report Type: Spontaneous
  Country: US (occurrence: None)
  Receive Date: 20220317
  Receipt Date: 20220317
  Transmission Date: 20220423
  Serious: Yes (Hospitalization)
  Sender: FDA-Public Use
  Company Number: None

PATIENT
  Sex: Male
  Weight: 68.6 kg

DRUGS (1)
  1. ERBITUX [Suspect]
     Active Substance: CETUXIMAB
     Dates: end: 20210604

REACTIONS (10)
  - Nausea [None]
  - Vomiting [None]
  - Respiratory failure [None]
  - Sepsis [None]
  - Aspiration [None]
  - Disease complication [None]
  - Dry mouth [None]
  - Secretion discharge [None]
  - Scab [None]
  - Atelectasis [None]

NARRATIVE: CASE EVENT DATE: 20211104
